FAERS Safety Report 17178066 (Version 1)
Quarter: 2019Q4

REPORT INFORMATION
  Report Type: Spontaneous
  Country: SE (occurrence: SE)
  Receive Date: 20191219
  Receipt Date: 20191219
  Transmission Date: 20200122
  Serious: Yes (Hospitalization)
  Sender: FDA-Public Use
  Company Number: SE-JNJFOC-20191224748

PATIENT
  Age: 21 Year
  Sex: Female

DRUGS (7)
  1. IPREN UNSPECIFIED [Suspect]
     Active Substance: IBUPROFEN
     Indication: PRODUCT USED FOR UNKNOWN INDICATION
     Dosage: THE AMBULANCE FOUND BLISTERS AT HOME,  4 G IPREN
     Route: 048
     Dates: start: 201904, end: 201904
  2. ATARAX [Suspect]
     Active Substance: HYDROXYZINE HYDROCHLORIDE
     Indication: PRODUCT USED FOR UNKNOWN INDICATION
     Dosage: THE AMBULANCE FOUND BLISTERS AT HOME,  120 MG ATARAX
     Route: 048
     Dates: start: 201904, end: 201904
  3. OMEPRAZOLE. [Suspect]
     Active Substance: OMEPRAZOLE
     Indication: PRODUCT USED FOR UNKNOWN INDICATION
     Dosage: THE AMBULANCE FOUND BLISTERS AT HOME, 140 MG OMEPRAZOLE
     Route: 048
     Dates: start: 201904, end: 201904
  4. PROPAVAN [Suspect]
     Active Substance: PROPIOMAZINE
     Indication: PRODUCT USED FOR UNKNOWN INDICATION
     Dosage: THE AMBULANCE FOUND BLISTERS AT HOME,  1250 MG PROPAVAN
     Route: 048
     Dates: start: 201904, end: 201904
  5. ATENOLOL. [Suspect]
     Active Substance: ATENOLOL
     Indication: PRODUCT USED FOR UNKNOWN INDICATION
     Dosage: THE AMBULANCE FOUND BLISTERS AT HOME,  100 MG ATENOLOL
     Route: 048
     Dates: start: 201904, end: 201904
  6. ALVEDON [Suspect]
     Active Substance: ACETAMINOPHEN
     Indication: PRODUCT USED FOR UNKNOWN INDICATION
     Dosage: THE AMBULANCE FOUND BLISTERS AT HOME,  5 G ALVEDON
     Route: 048
     Dates: start: 201904, end: 201904
  7. OXYCODONE [Suspect]
     Active Substance: OXYCODONE
     Indication: PRODUCT USED FOR UNKNOWN INDICATION
     Dosage: THE AMBULANCE FOUND BLISTERS AT HOME, 15 MG OXYCODONE
     Route: 048
     Dates: start: 201904, end: 201904

REACTIONS (3)
  - Intentional overdose [Unknown]
  - Intentional self-injury [Unknown]
  - Depressed level of consciousness [Unknown]

NARRATIVE: CASE EVENT DATE: 201904
